FAERS Safety Report 18875321 (Version 1)
Quarter: 2021Q1

REPORT INFORMATION
  Report Type: Spontaneous
  Country: US (occurrence: US)
  Receive Date: 20210210
  Receipt Date: 20210210
  Transmission Date: 20210420
  Serious: No
  Sender: FDA-Public Use
  Company Number: US-TOLMAR, INC.-21US025110

PATIENT
  Sex: Female
  Weight: 78.01 kg

DRUGS (1)
  1. FENSOLVI [Suspect]
     Active Substance: LEUPROLIDE ACETATE
     Indication: TRANS-SEXUALISM
     Dosage: 45 MG, Q 6 MONTH
     Route: 058

REACTIONS (1)
  - Off label use [Unknown]
